FAERS Safety Report 4566584-8 (Version None)
Quarter: 2005Q1

REPORT INFORMATION
  Report Type: 
  Country: None (occurrence: None)
  Receive Date: 20050126
  Receipt Date: 20050110
  Transmission Date: 20050727
  Serious: Yes (Hospitalization)
  Sender: FDA-Public Use
  Company Number: 2005BI000780

PATIENT
  Age: 52 Year
  Sex: Male
  Weight: 72.5755 kg

DRUGS (4)
  1. AVONEX [Suspect]
     Indication: MULTIPLE SCLEROSIS
     Dosage: 7.5 UG;QW;IM
     Route: 030
     Dates: start: 20010501, end: 20010501
  2. AVONEX [Suspect]
     Indication: MULTIPLE SCLEROSIS
     Dosage: 15 UG;QW;IM
     Route: 030
     Dates: start: 20010501, end: 20010501
  3. AVONEX [Suspect]
     Indication: MULTIPLE SCLEROSIS
     Dosage: 30 UG;QW;IM
     Route: 030
     Dates: start: 20010501, end: 20030101
  4. AVONEX [Suspect]
     Indication: MULTIPLE SCLEROSIS
     Dosage: 30 UG;QW;IM
     Route: 030
     Dates: start: 20030101

REACTIONS (6)
  - IATROGENIC INJURY [None]
  - INCISION SITE COMPLICATION [None]
  - POST PROCEDURAL PAIN [None]
  - PROCEDURAL COMPLICATION [None]
  - SALIVARY GLAND CANCER [None]
  - VIITH NERVE INJURY [None]
